FAERS Safety Report 23032654 (Version 1)
Quarter: 2023Q4

REPORT INFORMATION
  Report Type: Spontaneous
  Country: US (occurrence: US)
  Receive Date: 20231005
  Receipt Date: 20231005
  Transmission Date: 20240109
  Serious: No
  Sender: FDA-Public Use
  Company Number: US-BAYER-2023A132823

PATIENT

DRUGS (2)
  1. MIRALAX [Suspect]
     Active Substance: POLYETHYLENE GLYCOL 3350
     Dosage: 1/2 CAP
     Route: 048
  2. BENEFIBER [WHEAT DEXTRIN] [Concomitant]
     Dosage: UNK

REACTIONS (1)
  - Faeces soft [None]
